FAERS Safety Report 4670203-X (Version None)
Quarter: 2005Q2

REPORT INFORMATION
  Report Type: 
  Country: None (occurrence: None)
  Receive Date: 20050520
  Receipt Date: 20050511
  Transmission Date: 20051028
  Serious: Yes (Hospitalization, Other)
  Sender: FDA-Public Use
  Company Number: 2005073578

PATIENT
  Age: 80 Year
  Sex: Female
  Weight: 64.4108 kg

DRUGS (14)
  1. TIKOSYN [Suspect]
     Indication: ATRIAL FIBRILLATION
     Dosage: 0. 5MG (0.25, 2 IN 1 D)
     Dates: start: 20050424
  2. NITROGLYCERIN [Suspect]
     Indication: CHEST PAIN
     Dates: start: 20050503, end: 20050504
  3. DILTIAZEM [Concomitant]
  4. ACEBUTOLOL [Concomitant]
  5. SOTALOL HCL [Concomitant]
  6. COREG [Concomitant]
  7. CRESTOR [Concomitant]
  8. DIGOXIN [Concomitant]
  9. COZAAR [Concomitant]
  10. FUROSEMIDE [Concomitant]
  11. SYNTHROID [Concomitant]
  12. COUMADIN [Concomitant]
  13. PRILOSEC [Concomitant]
  14. POTASSIUM CHLORIDE [Concomitant]

REACTIONS (11)
  - BLOOD PRESSURE DECREASED [None]
  - BLOOD PRESSURE SYSTOLIC INCREASED [None]
  - BREAST PAIN [None]
  - CHEST PAIN [None]
  - DIZZINESS [None]
  - DRUG INEFFECTIVE [None]
  - HEADACHE [None]
  - HEART RATE INCREASED [None]
  - HYPERAESTHESIA [None]
  - PROTHROMBIN TIME PROLONGED [None]
  - SOMNOLENCE [None]
